FAERS Safety Report 22871886 (Version 2)
Quarter: 2023Q4

REPORT INFORMATION
  Report Type: Report from Study
  Country: CA (occurrence: CA)
  Receive Date: 20230828
  Receipt Date: 20231025
  Transmission Date: 20240110
  Serious: Yes (Other)
  Sender: FDA-Public Use
  Company Number: CA-JNJFOC-20230645729

PATIENT
  Age: 41 Year
  Sex: Female
  Weight: 111 kg

DRUGS (6)
  1. SIMPONI [Suspect]
     Active Substance: GOLIMUMAB
     Indication: Ankylosing spondylitis
     Route: 041
  2. SIMPONI [Suspect]
     Active Substance: GOLIMUMAB
     Dosage: 19-JUN-2023
     Route: 041
  3. SIMPONI [Suspect]
     Active Substance: GOLIMUMAB
     Dosage: 21-AUG-2023
     Route: 041
  4. OZEMPIC [Concomitant]
     Active Substance: SEMAGLUTIDE
     Indication: Weight decreased
     Route: 058
     Dates: start: 20230313
  5. PRISTIQ EXTENDED-RELEASE [Concomitant]
     Active Substance: DESVENLAFAXINE SUCCINATE
     Route: 048
     Dates: start: 20230517
  6. PREDNISONE [Concomitant]
     Active Substance: PREDNISONE
     Route: 048
     Dates: start: 20230703

REACTIONS (3)
  - Ankylosing spondylitis [Recovered/Resolved]
  - Oral herpes [Not Recovered/Not Resolved]
  - Off label use [Unknown]

NARRATIVE: CASE EVENT DATE: 20220801
